FAERS Safety Report 16523052 (Version 1)
Quarter: 2019Q3

REPORT INFORMATION
  Report Type: Spontaneous
  Country: US (occurrence: US)
  Receive Date: 20190523
  Receipt Date: 20190523
  Transmission Date: 20191004
  Serious: No
  Sender: FDA-Public Use
  Company Number: None

PATIENT
  Sex: Female

DRUGS (2)
  1. VERZENIO [Suspect]
     Active Substance: ABEMACICLIB
     Indication: BREAST CANCER
     Route: 048
     Dates: start: 20190306, end: 201904
  2. VERZENIO [Suspect]
     Active Substance: ABEMACICLIB
     Indication: BONE CANCER
     Route: 048
     Dates: start: 20190306, end: 201904

REACTIONS (1)
  - Disease progression [None]
